FAERS Safety Report 6821733-3 (Version None)
Quarter: 2010Q3

REPORT INFORMATION
  Report Type: 
  Country: None (occurrence: None)
  Receive Date: 20100702
  Receipt Date: 20100623
  Transmission Date: 20110219
  Serious: Yes (Other)
  Sender: FDA-Public Use
  Company Number: 7007738

PATIENT
  Age: 27 Year
  Sex: Female
  Weight: 66 kg

DRUGS (2)
  1. GONAL-F [Suspect]
     Indication: OVULATION INDUCTION
     Dosage: 75 IU, 1 IN 1 D; SUBCUTANEOUS
     Route: 058
     Dates: start: 20100318, end: 20100328
  2. HUMAN CHORIONIC GONADOTROPHIN [Concomitant]

REACTIONS (3)
  - ABORTION SPONTANEOUS [None]
  - DRUG EXPOSURE DURING PREGNANCY [None]
  - PREGNANCY [None]
